FAERS Safety Report 24986032 (Version 1)
Quarter: 2025Q1

REPORT INFORMATION
  Report Type: Report from Study
  Country: US (occurrence: None)
  Receive Date: 20250219
  Receipt Date: 20250219
  Transmission Date: 20250408
  Serious: No
  Sender: ALEXION PHARMACEUTICALS
  Company Number: US-AstraZeneca-2016SE47675

PATIENT

DRUGS (11)
  1. NEXIUM 24HR [Suspect]
     Active Substance: ESOMEPRAZOLE MAGNESIUM
     Dosage: 20 MILLIGRAM, QD
  2. SYMBICORT AEROSPHERE [Suspect]
     Active Substance: BUDESONIDE\FORMOTEROL FUMARATE
     Dosage: 160/4.5 MCG, TWICE A DAY
  3. DALIRESP [Suspect]
     Active Substance: ROFLUMILAST
     Dosage: 500 MICROGRAM, QD
  4. MYRBETRIQ [Concomitant]
     Active Substance: MIRABEGRON
     Indication: Urine analysis abnormal
     Dosage: 25 MILLIGRAM, QD
  5. SERTRALINE [Concomitant]
     Active Substance: SERTRALINE HYDROCHLORIDE
     Indication: Amnesia
  6. ERYTHROMYCIN [Concomitant]
     Active Substance: ERYTHROMYCIN
  7. FUROSEMIDE [Concomitant]
     Active Substance: FUROSEMIDE
     Indication: Diuretic therapy
     Dosage: 40 MILLIGRAM, QD
  8. TRAZODONE [Concomitant]
     Active Substance: TRAZODONE HYDROCHLORIDE
     Dosage: 100 MILLIGRAM, QD
  9. PRAMIPEXOLE [Concomitant]
     Active Substance: PRAMIPEXOLE
     Indication: Restless legs syndrome
     Dosage: .25 MILLIGRAM, BID
  10. DONEPEZIL [Concomitant]
     Active Substance: DONEPEZIL
     Indication: Amnesia
  11. OXYGEN [Concomitant]
     Active Substance: OXYGEN

REACTIONS (2)
  - Hypoacusis [Unknown]
  - Cough [Unknown]
